FAERS Safety Report 6118367-5 (Version None)
Quarter: 2009Q1

REPORT INFORMATION
  Report Type: 
  Country: None (occurrence: None)
  Receive Date: 20090314
  Receipt Date: 20090216
  Transmission Date: 20090719
  Serious: No
  Sender: FDA-Public Use
  Company Number: US-ABBOTT-09P-163-0557729-00

PATIENT
  Sex: Female
  Weight: 86.26 kg

DRUGS (4)
  1. HUMIRA [Suspect]
     Indication: RHEUMATOID ARTHRITIS
     Route: 058
     Dates: start: 20090112
  2. VICODIN [Concomitant]
     Indication: BACK PAIN
  3. COUMADIN [Concomitant]
     Indication: DRUG USE FOR UNKNOWN INDICATION
  4. ARAVA [Concomitant]
     Indication: DRUG USE FOR UNKNOWN INDICATION

REACTIONS (4)
  - GRIP STRENGTH DECREASED [None]
  - HEADACHE [None]
  - OEDEMA PERIPHERAL [None]
  - PARAESTHESIA [None]
